FAERS Safety Report 13333509 (Version 1)
Quarter: 2017Q1

REPORT INFORMATION
  Report Type: Spontaneous
  Country: US (occurrence: US)
  Receive Date: 20170313
  Receipt Date: 20170313
  Transmission Date: 20170428
  Serious: No
  Sender: FDA-Public Use
  Company Number: US-SHIRE-US201705064

PATIENT
  Sex: Female

DRUGS (4)
  1. MIDODRINE [Concomitant]
     Active Substance: MIDODRINE
     Indication: HYPOTENSION
     Dosage: 5 MG, 3X/DAY:TID
     Route: 048
     Dates: start: 201604
  2. DORZOLAMIDE [Concomitant]
     Active Substance: DORZOLAMIDE
     Indication: GLAUCOMA
     Dosage: 1 GTT, 2X/DAY:BID
     Route: 047
     Dates: start: 201604
  3. ALPHAGAN P [Concomitant]
     Active Substance: BRIMONIDINE TARTRATE
     Indication: GLAUCOMA
     Dosage: 1 GTT, 2X/DAY:BID
     Route: 047
     Dates: start: 201604
  4. XIIDRA [Suspect]
     Active Substance: LIFITEGRAST
     Indication: DRY EYE
     Dosage: 1 GTT (BOTH EYES), 2X/DAY:BID
     Route: 047
     Dates: start: 201609

REACTIONS (2)
  - Eye irritation [Recovered/Resolved]
  - Product quality issue [Unknown]

NARRATIVE: CASE EVENT DATE: 201611
